FAERS Safety Report 17911508 (Version 2)
Quarter: 2020Q3

REPORT INFORMATION
  Report Type: Report from Study
  Country: US (occurrence: US)
  Receive Date: 20200618
  Receipt Date: 20200813
  Transmission Date: 20201103
  Serious: Yes (Other)
  Sender: FDA-Public Use
  Company Number: US-TEVA-2020-US-1788515

PATIENT
  Age: 32 Year
  Sex: Female

DRUGS (2)
  1. CLARAVIS [Suspect]
     Active Substance: ISOTRETINOIN
     Dosage: AVERAGE DAILY DOSE 80 MILLIGRAM
     Route: 065
     Dates: end: 2019
  2. CLARAVIS [Suspect]
     Active Substance: ISOTRETINOIN
     Dosage: AVERAGE DAILY DOSE 80 MILLIGRAM
     Route: 065
     Dates: start: 20190813

REACTIONS (1)
  - Unintended pregnancy [Unknown]
